FAERS Safety Report 9363985 (Version 3)
Quarter: 2013Q3

REPORT INFORMATION
  Report Type: Spontaneous
  Country: JP (occurrence: None)
  Receive Date: 20130618
  Receipt Date: 20130701
  Transmission Date: 20140515
  Serious: Yes (Other)
  Sender: FDA-Public Use
  Company Number: TCI2013A03416

PATIENT
  Age: 89 Year
  Sex: Female

DRUGS (1)
  1. LANSOPRAZOLE [Suspect]
     Route: 048

REACTIONS (3)
  - Colitis microscopic [None]
  - Large intestinal ulcer [None]
  - Acute abdomen [None]
